FAERS Safety Report 20018589 (Version 2)
Quarter: 2021Q4

REPORT INFORMATION
  Report Type: Report from Study
  Country: US (occurrence: None)
  Receive Date: 20211101
  Receipt Date: 20211122
  Transmission Date: 20220303
  Serious: Yes (Life-Threatening, Disabling)
  Sender: FDA-Public Use
  Company Number: US-ROCHE-2940258

PATIENT
  Age: 63 Year
  Sex: Male
  Weight: 98.9 kg

DRUGS (23)
  1. DORNASE ALFA [Suspect]
     Active Substance: DORNASE ALFA
     Indication: COVID-19
     Route: 045
     Dates: start: 20210823, end: 20210824
  2. VANCOMYCIN [Concomitant]
     Active Substance: VANCOMYCIN
     Dates: start: 20211013
  3. CEFEPIME [Concomitant]
     Active Substance: CEFEPIME HYDROCHLORIDE
     Dates: start: 20211006
  4. METRONIDAZOLE [Concomitant]
     Active Substance: METRONIDAZOLE
     Dates: start: 20211013
  5. CHOLECALCIFEROL [Concomitant]
     Active Substance: CHOLECALCIFEROL
     Dates: start: 20211002
  6. CISATRACURIUM [Concomitant]
     Active Substance: CISATRACURIUM
     Dates: start: 20211013, end: 20211014
  7. DILTIAZEM [Concomitant]
     Active Substance: DILTIAZEM
     Dates: start: 20211012, end: 20211013
  8. DOCUSATE [Concomitant]
     Active Substance: DOCUSATE
     Dates: start: 20211006, end: 20211018
  9. ENOXAPARIN [Concomitant]
     Active Substance: ENOXAPARIN
     Dates: start: 20210930
  10. GABAPENTIN [Concomitant]
     Active Substance: GABAPENTIN
     Dates: start: 20160910
  11. HYDROMORPHONE [Concomitant]
     Active Substance: HYDROMORPHONE
     Dates: start: 20211011
  12. INSULIN LISPRO [Concomitant]
     Active Substance: INSULIN LISPRO
     Dates: start: 20210922
  13. NPH INSULIN [Concomitant]
     Active Substance: INSULIN BEEF
     Dates: start: 20210923
  14. METOCLOPRAMIDE [Concomitant]
     Active Substance: METOCLOPRAMIDE
     Dates: start: 20210928, end: 20211014
  15. VASOPRESSIN [Concomitant]
     Active Substance: VASOPRESSIN
     Dates: start: 20211013, end: 20211015
  16. MIDAZOLAM [Concomitant]
     Active Substance: MIDAZOLAM
     Dates: start: 20211013
  17. NOREPINEPHRINE [Concomitant]
     Active Substance: NOREPINEPHRINE
     Dates: start: 20211005, end: 20211017
  18. PANTOPRAZOLE [Concomitant]
     Active Substance: PANTOPRAZOLE
     Dates: start: 20210924, end: 20211015
  19. PROPOFOL [Concomitant]
     Active Substance: PROPOFOL
     Dates: start: 20210927, end: 20211019
  20. SENNA [Concomitant]
     Active Substance: SENNA LEAF\SENNOSIDES\SENNOSIDES A AND B
     Dates: start: 20210927, end: 20211019
  21. SODIUM CHLORIDE [Concomitant]
     Active Substance: SODIUM CHLORIDE
     Dates: start: 20210923
  22. VORICONAZOLE [Concomitant]
     Active Substance: VORICONAZOLE
     Dates: start: 20211008, end: 20211013
  23. ATORVASTATIN [Concomitant]
     Active Substance: ATORVASTATIN
     Dates: start: 20150831

REACTIONS (2)
  - Cholecystitis acute [Recovered/Resolved]
  - Septic shock [Unknown]

NARRATIVE: CASE EVENT DATE: 20211013
